FAERS Safety Report 18256763 (Version 1)
Quarter: 2020Q3

REPORT INFORMATION
  Report Type: Spontaneous
  Country: US (occurrence: US)
  Receive Date: 20200910
  Receipt Date: 20200910
  Transmission Date: 20201103
  Serious: No
  Sender: FDA-Public Use
  Company Number: None

PATIENT
  Age: 34 Year
  Sex: Female
  Weight: 65.9 kg

DRUGS (2)
  1. LEVOTHYROXINE 125MCG [Suspect]
     Active Substance: LEVOTHYROXINE SODIUM
  2. SYNTHROID [Suspect]
     Active Substance: LEVOTHYROXINE SODIUM

REACTIONS (2)
  - Product substitution issue [None]
  - Therapy non-responder [None]
